FAERS Safety Report 7280164-5 (Version None)
Quarter: 2011Q1

REPORT INFORMATION
  Report Type: 
  Country: None (occurrence: None)
  Receive Date: 20110208
  Receipt Date: 20110117
  Transmission Date: 20110831
  Serious: Yes (Disabling, Other)
  Sender: FDA-Public Use
  Company Number: PHHY2010JP58684

PATIENT
  Sex: Male
  Weight: 72 kg

DRUGS (18)
  1. NOVORAPID [Concomitant]
     Dosage: 18 DF
     Route: 058
  2. LANTUS [Concomitant]
     Dosage: 14DF
  3. SORAFENIB TOSILATE [Concomitant]
     Indication: METASTATIC RENAL CELL CARCINOMA
     Dosage: 800 MG
     Route: 048
     Dates: start: 20090619, end: 20100523
  4. INTERFERON ALFA [Concomitant]
     Indication: METASTATIC RENAL CELL CARCINOMA
     Dosage: 5000000 DF, UNK
     Dates: start: 20090105, end: 20090615
  5. TRANSAMIN [Concomitant]
     Dosage: 500 MG
     Route: 048
     Dates: start: 20100604, end: 20100620
  6. GLYMESASON [Concomitant]
     Dosage: UNK
  7. AFINITOR [Suspect]
     Dosage: 10 MG, DAILY
     Route: 048
     Dates: start: 20101004
  8. MITIGLINIDE [Concomitant]
     Dosage: UNK
     Route: 048
  9. GLIMICRON [Concomitant]
     Dosage: 40 MG
     Route: 048
  10. PROPADERM [Concomitant]
     Dosage: UNK
  11. AFINITOR [Suspect]
     Dosage: 5 MG, DAILY
     Route: 048
     Dates: start: 20100721, end: 20100815
  12. AFINITOR [Suspect]
     Dosage: 2.5 MG, DAILY
     Route: 048
     Dates: start: 20100816, end: 20100818
  13. AFINITOR [Suspect]
     Indication: METASTATIC RENAL CELL CARCINOMA
     Dosage: 10 MG, DAILY
     Route: 048
     Dates: start: 20100524, end: 20100712
  14. TECELEUKIN [Concomitant]
     Indication: METASTATIC RENAL CELL CARCINOMA
     Dosage: 700000 DF, UNK
     Dates: start: 20090217, end: 20090615
  15. ACTOS [Concomitant]
     Dosage: 15 MG, UNK
     Route: 048
  16. TOWARAT [Concomitant]
     Dosage: 20 MG
     Route: 048
  17. OLMETEC [Concomitant]
     Dosage: 40 MG
     Route: 048
  18. CELTECT [Concomitant]
     Dosage: 60 MG
     Route: 048
     Dates: start: 20100604, end: 20100620

REACTIONS (2)
  - ECZEMA [None]
  - BLOOD GLUCOSE INCREASED [None]
